FAERS Safety Report 7503649-2 (Version None)
Quarter: 2011Q2

REPORT INFORMATION
  Report Type: 
  Country: None (occurrence: None)
  Receive Date: 20110518
  Receipt Date: 20110505
  Transmission Date: 20111010
  Serious: Yes (Death)
  Sender: FDA-Public Use
  Company Number: 2011MA005807

PATIENT
  Age: 21 Year
  Sex: Male

DRUGS (1)
  1. FLUOXETINE [Suspect]
     Indication: DEPRESSION
     Dosage: 20 MG;QD;PO
     Route: 048
     Dates: start: 20100707, end: 20100712

REACTIONS (5)
  - COMPLETED SUICIDE [None]
  - ASPHYXIA [None]
  - ALCOHOL USE [None]
  - BLUNTED AFFECT [None]
  - MEMORY IMPAIRMENT [None]
